FAERS Safety Report 9825390 (Version 1)
Quarter: 2013Q4

REPORT INFORMATION
  Report Type: Spontaneous
  Country: US (occurrence: None)
  Receive Date: 20131028
  Receipt Date: 20131028
  Transmission Date: 20140711
  Serious: Yes (Other)
  Sender: FDA-Public Use
  Company Number: 2013US002451

PATIENT
  Age: 55 Year
  Sex: Female
  Weight: 62 kg

DRUGS (7)
  1. ICLUSIG [Suspect]
     Indication: CHRONIC MYELOID LEUKAEMIA
     Dosage: 30 MG, QD, ORAL
     Route: 048
     Dates: start: 20130719
  2. CLINDAMYCIN [Suspect]
     Indication: PREMEDICATION
     Dosage: 150 MG, TID, ORAL
     Route: 048
     Dates: start: 20130820, end: 20130822
  3. CLINDAMYCIN [Suspect]
     Indication: TOOTH EXTRACTION
     Dosage: 150 MG, TID, ORAL
     Route: 048
     Dates: start: 20130820, end: 20130822
  4. FLAXSEED OIL (FLAXSEED OIL) [Concomitant]
  5. VITAMIN D (VITAMIN D) [Concomitant]
  6. CLARITIN (LORATADINE) [Concomitant]
  7. NAPROXEN (NAPROXEN) [Concomitant]

REACTIONS (7)
  - Tooth infection [None]
  - Furuncle [None]
  - Dental fistula [None]
  - Tooth erosion [None]
  - Nausea [None]
  - Fatigue [None]
  - Dyspnoea [None]
